FAERS Safety Report 9112628 (Version 3)
Quarter: 2013Q3

REPORT INFORMATION
  Report Type: Spontaneous
  Country: US (occurrence: US)
  Receive Date: 20130211
  Receipt Date: 20130717
  Transmission Date: 20140515
  Serious: Yes (Hospitalization)
  Sender: FDA-Public Use
  Company Number: US-BAYER-2013-017697

PATIENT
  Age: 32 Year
  Sex: Female
  Weight: 80 kg

DRUGS (18)
  1. YAZ [Suspect]
     Dosage: UNK
     Dates: start: 201203, end: 201204
  2. SAFYRAL [Suspect]
     Indication: MENSTRUAL DISORDER
     Dosage: UNK
     Dates: start: 201203, end: 201204
  3. SAFYRAL [Suspect]
     Indication: ACNE
  4. SAFYRAL [Suspect]
     Indication: CONTRACEPTION
  5. PRENATAL VITAMINS [VIT C,VIT H,MIN NOS,VIT PP,RETINOL,VIT E,VIT B [Concomitant]
     Dosage: UNK
     Dates: start: 20120208
  6. OXYTOCIN [Concomitant]
     Dosage: 30 UNITS
     Dates: start: 20120208
  7. COLACE [Concomitant]
     Dosage: 100 MG, HS
     Route: 048
     Dates: start: 20120208, end: 20120209
  8. NUBAIN [Concomitant]
     Indication: LABOUR PAIN
     Dosage: 5 MG, Q1HR
     Dates: start: 20120208
  9. TUCKS [Concomitant]
     Indication: PERINEAL PAIN
     Dosage: 1 PAD EVERY HOUR AS NEEDED
     Route: 061
     Dates: start: 20120208
  10. AMERICAINE [Concomitant]
     Indication: PERINEAL PAIN
     Dosage: UNK
     Dates: start: 20120208
  11. HYDROCORTISONE [HYDROCORTISONE] [Concomitant]
     Indication: PERINEAL PAIN
     Dosage: UNK UNK, Q4HR
     Route: 061
     Dates: start: 20120208
  12. MOTRIN [Concomitant]
     Indication: PAIN
     Dosage: 600 MG, QID
     Route: 048
     Dates: start: 20120208, end: 20120210
  13. PERCOCET [OXYCODONE HYDROCHLORIDE,OXYCODONE TEREPHTHALATE,PARACETA [Concomitant]
     Indication: PAIN
     Dosage: 5MG/325MG
     Route: 048
     Dates: start: 20120208, end: 20120210
  14. LACTATED RINGER^S [Concomitant]
     Dosage: UNK
     Dates: start: 20120208
  15. DIPHTHERIA VACCINE W/ PERTUSSIS V/ TETANUS V [Concomitant]
     Dosage: 0.5 MG, UNK
     Route: 030
     Dates: start: 20120209
  16. LORATAB [Concomitant]
     Indication: PAIN
     Dosage: 5-500, EVERY 4-6 HOURS AS NEEDED
     Dates: start: 20120210
  17. TYLENOL [Concomitant]
  18. HYDROCODONE/ACETAMINOPHEN [Concomitant]

REACTIONS (5)
  - Deep vein thrombosis [None]
  - Thrombosis [None]
  - Injury [None]
  - Pain [None]
  - Emotional distress [None]
